FAERS Safety Report 21904810 (Version 3)
Quarter: 2023Q1

REPORT INFORMATION
  Report Type: Spontaneous
  Country: DE (occurrence: DE)
  Receive Date: 20230124
  Receipt Date: 20230303
  Transmission Date: 20230418
  Serious: No
  Sender: FDA-Public Use
  Company Number: DE-009507513-2301DEU007985

PATIENT
  Age: 7 Year
  Sex: Male
  Weight: 22 kg

DRUGS (1)
  1. PREVYMIS [Suspect]
     Active Substance: LETERMOVIR
     Indication: Cytomegalovirus infection
     Dosage: 120 MILLIGRAM, QD
     Route: 048
     Dates: start: 20221230, end: 20230116

REACTIONS (1)
  - Viral load increased [Recovering/Resolving]

NARRATIVE: CASE EVENT DATE: 20221230
